FAERS Safety Report 8223750-8 (Version None)
Quarter: 2012Q1

REPORT INFORMATION
  Report Type: 
  Country: None (occurrence: None)
  Receive Date: 20120316
  Receipt Date: 20120301
  Transmission Date: 20120608
  Serious: Yes (Other)
  Sender: FDA-Public Use
  Company Number: ES-1190931

PATIENT

DRUGS (13)
  1. VISCOAT (VISCOAT) [Suspect]
  2. LIQUIFILM (LIQUIFILM LAGRIMAS) (ALLERGAN) [Suspect]
  3. VANCOMYCIN [Suspect]
  4. CEFTAZIDIMA (CEFTAZIDIMA) [Suspect]
  5. VIGAMOX 0.5 % OPHTHALMIC SOLUTION (VIGAMOX) [Suspect]
     Dosage: (OPHTHALMIC)
     Route: 047
  6. LIDOCAINE [Suspect]
  7. BETADINE [Suspect]
  8. BSS [Suspect]
  9. AMIKACINA (AMIKACINA NORMON 500 MG) (NORMON) [Suspect]
  10. BUPIVACAINA (BUPIVACAINA 0.5% C/V) (ANGELINI) [Suspect]
  11. BETADINE [Suspect]
  12. ACTOCORTINA (ACTOCORTINA 500 MG) (LEO AB) [Suspect]
  13. LIQUIFILM (LIQUIFILM LAGRIMAS) (ALLERGAN) [Suspect]

REACTIONS (1)
  - ENDOPHTHALMITIS [None]
